FAERS Safety Report 12352914 (Version 1)
Quarter: 2016Q2

REPORT INFORMATION
  Report Type: Spontaneous
  Country: US (occurrence: US)
  Receive Date: 20160510
  Receipt Date: 20160510
  Transmission Date: 20160815
  Serious: Yes (Disabling)
  Sender: FDA-Public Use
  Company Number: US-FRI-1000084437

PATIENT
  Age: 61 Year
  Sex: Female
  Weight: 62 kg

DRUGS (3)
  1. VITAMIN D [Concomitant]
     Active Substance: CHOLECALCIFEROL
  2. LINZESS [Suspect]
     Active Substance: LINACLOTIDE
     Route: 048
  3. CALCIUM [Concomitant]
     Active Substance: CALCIUM

REACTIONS (2)
  - Lethargy [Unknown]
  - Hypersomnia [Unknown]
